FAERS Safety Report 8662203 (Version 3)
Quarter: 2012Q4

REPORT INFORMATION
  Report Type: Report from Study
  Country: JP (occurrence: JP)
  Receive Date: 20120712
  Receipt Date: 20121212
  Transmission Date: 20130627
  Serious: Yes (Hospitalization)
  Sender: FDA-Public Use
  Company Number: JP-JNJFOC-20120703558

PATIENT
  Age: 81 Year
  Sex: Female
  Weight: 42 kg

DRUGS (14)
  1. SIMPONI [Suspect]
     Indication: RHEUMATOID ARTHRITIS
     Route: 058
     Dates: start: 20111214
  2. SIMPONI [Suspect]
     Indication: RHEUMATOID ARTHRITIS
     Route: 058
     Dates: start: 20120111
  3. SIMPONI [Suspect]
     Indication: RHEUMATOID ARTHRITIS
     Route: 058
     Dates: start: 201111
  4. PREDNISOLONE [Concomitant]
     Indication: RHEUMATOID ARTHRITIS
     Route: 048
  5. CELECOXIB [Concomitant]
     Indication: RHEUMATOID ARTHRITIS
     Route: 048
  6. OLMETEC [Concomitant]
     Route: 048
  7. CALBLOCK [Concomitant]
     Route: 048
  8. TAKEPRON [Concomitant]
     Route: 048
  9. ALLEGRA [Concomitant]
     Route: 048
  10. RECALBON [Concomitant]
     Route: 048
  11. ISCOTIN [Concomitant]
     Indication: PROPHYLAXIS
     Route: 048
     Dates: start: 20111116, end: 20120111
  12. LOXONIN [Concomitant]
     Indication: RHEUMATOID ARTHRITIS
     Dosage: tape
     Route: 061
  13. LOXONIN [Concomitant]
     Indication: RHEUMATOID ARTHRITIS
     Route: 061
     Dates: end: 20120120
  14. PROTECADIN [Concomitant]
     Route: 048

REACTIONS (1)
  - Pneumonia pseudomonas aeruginosa [Recovering/Resolving]
